FAERS Safety Report 6717923-0 (Version None)
Quarter: 2010Q2

REPORT INFORMATION
  Report Type: 
  Country: None (occurrence: None)
  Receive Date: 20100510
  Receipt Date: 20100427
  Transmission Date: 20101027
  Serious: Yes (Hospitalization, Other)
  Sender: FDA-Public Use
  Company Number: PHHY2010JP28517

PATIENT
  Age: 66 Year
  Sex: Male

DRUGS (8)
  1. FASTIC [Suspect]
     Indication: DIABETES MELLITUS
     Dosage: 90 MG DAILY
     Route: 048
     Dates: start: 20070611, end: 20100326
  2. CRAVIT [Concomitant]
     Indication: INFECTION
     Dosage: UNK
     Route: 048
     Dates: start: 20100315, end: 20100327
  3. ALLOPURINOL [Concomitant]
  4. HORNEL [Concomitant]
  5. MUCOSTA [Concomitant]
  6. NORVASC [Concomitant]
  7. BASEN [Concomitant]
  8. EPADEL [Concomitant]

REACTIONS (2)
  - HYPOGLYCAEMIA [None]
  - INFECTION [None]
